FAERS Safety Report 4497555-8 (Version None)
Quarter: 2004Q4

REPORT INFORMATION
  Report Type: 
  Country: None (occurrence: None)
  Receive Date: 20041104
  Receipt Date: 20041021
  Transmission Date: 20050328
  Serious: Yes (Other)
  Sender: FDA-Public Use
  Company Number: 2004-DE-05557GD

PATIENT
  Age: 66 Year
  Sex: Male

DRUGS (2)
  1. MEXILETINE HCL [Suspect]
     Indication: VENTRICULAR TACHYCARDIA
  2. CARVEDILOL [Suspect]
     Indication: VENTRICULAR TACHYCARDIA

REACTIONS (1)
  - DRUG INEFFECTIVE [None]
